FAERS Safety Report 6244442-0 (Version None)
Quarter: 2009Q2

REPORT INFORMATION
  Report Type: 
  Country: None (occurrence: None)
  Receive Date: 20090623
  Receipt Date: 20090609
  Transmission Date: 20091009
  Serious: Yes (Hospitalization)
  Sender: FDA-Public Use
  Company Number: 230001L09DEU

PATIENT
  Age: 40 Year
  Sex: Female

DRUGS (2)
  1. INTERFERON ALFA [Suspect]
     Indication: MALIGNANT MELANOMA
  2. INTERFERON ALFA [Suspect]
     Indication: METASTASIS

REACTIONS (2)
  - ACUTE HEPATIC FAILURE [None]
  - AUTOIMMUNE HEPATITIS [None]
